FAERS Safety Report 5286931-1 (Version None)
Quarter: 2007Q2

REPORT INFORMATION
  Report Type: 
  Country: None (occurrence: None)
  Receive Date: 20070404
  Receipt Date: 20070328
  Transmission Date: 20071010
  Serious: Yes (Death, Hospitalization)
  Sender: FDA-Public Use
  Company Number: US-MERCK-0704USA00206

PATIENT
  Age: 13 Year
  Sex: Male

DRUGS (4)
  1. INDOCIN [Suspect]
     Indication: RHEUMATOID ARTHRITIS
     Route: 048
  2. INDOCIN [Suspect]
     Route: 048
  3. MYOCHRYSINE [Suspect]
     Indication: JUVENILE ARTHRITIS
     Route: 030
  4. ASPIRIN [Concomitant]
     Route: 065

REACTIONS (10)
  - BLOOD ALBUMIN DECREASED [None]
  - CARDIAC FAILURE CHRONIC [None]
  - CARDIOMEGALY [None]
  - CHEST PAIN [None]
  - COAGULOPATHY [None]
  - HEPATOSPLENOMEGALY [None]
  - JUVENILE ARTHRITIS [None]
  - POLYARTHRITIS [None]
  - PULMONARY FIBROSIS [None]
  - PYREXIA [None]
